FAERS Safety Report 8758313 (Version 1)
Quarter: 2012Q4

REPORT INFORMATION
  Report Type: Report from Study
  Country: BE (occurrence: BE)
  Receive Date: 20120829
  Receipt Date: 20120829
  Transmission Date: 20130627
  Serious: Yes (Other)
  Sender: FDA-Public Use
  Company Number: BE-ASTELLAS-2012US007317

PATIENT
  Sex: Female

DRUGS (2)
  1. ERLOTINIB TABLET [Suspect]
     Indication: PANCREATIC CARCINOMA
     Dosage: 100 mg, Unknown/D
     Route: 048
     Dates: start: 20090622
  2. ERLOTINIB TABLET [Suspect]
     Dosage: 100 mg, Unknown/D
     Route: 048
     Dates: end: 20100315

REACTIONS (2)
  - Toxicity to various agents [Unknown]
  - Peritoneal disorder [Unknown]
